FAERS Safety Report 5050633-7 (Version None)
Quarter: 2006Q3

REPORT INFORMATION
  Report Type: 
  Country: None (occurrence: None)
  Receive Date: 20060710
  Receipt Date: 20060626
  Transmission Date: 20061208
  Serious: Yes (Death, Other)
  Sender: FDA-Public Use
  Company Number: 430001L06FRA

PATIENT
  Age: 59 Year
  Sex: Male

DRUGS (2)
  1. MITOXANTRONE [Suspect]
     Indication: ACUTE MYELOID LEUKAEMIA
  2. CYTARABINE [Suspect]
     Indication: ACUTE MYELOID LEUKAEMIA

REACTIONS (5)
  - AGRANULOCYTOSIS [None]
  - BRONCHIAL OBSTRUCTION [None]
  - LEUKAEMIA RECURRENT [None]
  - RESPIRATORY DISTRESS [None]
  - STENOTROPHOMONAS INFECTION [None]
